FAERS Safety Report 5183977-9 (Version None)
Quarter: 2006Q4

REPORT INFORMATION
  Report Type: 
  Country: None (occurrence: None)
  Receive Date: 20061220
  Receipt Date: 20060303
  Transmission Date: 20070319
  Serious: No
  Sender: FDA-Public Use
  Company Number: US-GLAXOSMITHKLINE-A0596078A

PATIENT
  Age: 44 Year
  Sex: Male

DRUGS (2)
  1. EQUATE NTS [Suspect]
  2. NICODERM CQ [Suspect]
     Dates: start: 20050616

REACTIONS (4)
  - ABNORMAL DREAMS [None]
  - ANXIETY [None]
  - DRUG ADMINISTRATION ERROR [None]
  - PSYCHOMOTOR HYPERACTIVITY [None]
